FAERS Safety Report 20633555 (Version 1)
Quarter: 2022Q1

REPORT INFORMATION
  Report Type: Report from Study
  Country: IT (occurrence: IT)
  Receive Date: 20220324
  Receipt Date: 20220324
  Transmission Date: 20220423
  Serious: Yes (Other)
  Sender: FDA-Public Use
  Company Number: IT-BIOGEN-2022BI01106330

PATIENT
  Age: 40 Year
  Sex: Male

DRUGS (4)
  1. TECFIDERA [Suspect]
     Active Substance: DIMETHYL FUMARATE
     Indication: Multiple sclerosis
     Dosage: STARTING DOSE
     Route: 048
     Dates: start: 20160301, end: 20160307
  2. TECFIDERA [Suspect]
     Active Substance: DIMETHYL FUMARATE
     Dosage: MAINTENANCE DOSE
     Route: 048
     Dates: start: 20160308, end: 20160525
  3. LAMICTAL [Concomitant]
     Active Substance: LAMOTRIGINE
     Indication: Multiple sclerosis
     Route: 048
     Dates: start: 20160229
  4. OMEPRAZOLE [Concomitant]
     Active Substance: OMEPRAZOLE
     Indication: Gastrointestinal disorder prophylaxis
     Route: 048
     Dates: start: 20160525

REACTIONS (1)
  - Helicobacter duodenitis [Recovered/Resolved]

NARRATIVE: CASE EVENT DATE: 20160720
